FAERS Safety Report 4498329-4 (Version None)
Quarter: 2004Q4

REPORT INFORMATION
  Report Type: 
  Country: None (occurrence: None)
  Receive Date: 20041104
  Receipt Date: 20041022
  Transmission Date: 20050328
  Serious: Yes (Other)
  Sender: FDA-Public Use
  Company Number: 2004082914

PATIENT
  Age: 50 Year
  Sex: Male

DRUGS (6)
  1. GABAPENTIN [Suspect]
     Indication: DIABETIC NEUROPATHY
  2. INITARD (INSULIN, INSULIN INJECTION, ISOPHANE) [Concomitant]
  3. METFORMIN HCL [Concomitant]
  4. AMITRIPTYLINE (AMITRIPTYLINE) [Concomitant]
  5. DIHYDROCODEINE (DIHYDROCODEINE) [Concomitant]
  6. RAMIPRIL [Concomitant]

REACTIONS (3)
  - CHOLESTASIS [None]
  - HEPATIC STEATOSIS [None]
  - HEPATITIS [None]
